FAERS Safety Report 7282784-0 (Version None)
Quarter: 2011Q1

REPORT INFORMATION
  Report Type: 
  Country: None (occurrence: None)
  Receive Date: 20110209
  Receipt Date: 20110203
  Transmission Date: 20110831
  Serious: Yes (Hospitalization)
  Sender: FDA-Public Use
  Company Number: DE-BAYER-2011-008683

PATIENT
  Sex: Female

DRUGS (2)
  1. MIRENA [Suspect]
     Indication: CONTRACEPTION
     Dosage: 20 ?G, CONT
     Dates: start: 19991202
  2. MIRENA [Suspect]
     Indication: MENORRHAGIA
     Dosage: 20 ?G, CONT
     Dates: start: 20050419, end: 20101201

REACTIONS (3)
  - CHOLELITHIASIS [None]
  - FOCAL NODULAR HYPERPLASIA [None]
  - CHOLECYSTITIS CHRONIC [None]
